FAERS Safety Report 5917085-3 (Version None)
Quarter: 2008Q4

REPORT INFORMATION
  Report Type: 
  Country: None (occurrence: None)
  Receive Date: 20081010
  Receipt Date: 20081010
  Transmission Date: 20090506
  Serious: Yes (Life-Threatening)
  Sender: FDA-Public Use
  Company Number: None

PATIENT

DRUGS (3)
  1. DOXAZOSIN MESYLATE [Suspect]
     Indication: BENIGN PROSTATIC HYPERPLASIA
     Dates: start: 20050929, end: 20071116
  2. DOXAZOSIN MESYLATE [Suspect]
     Indication: HYPERTENSION
     Dates: start: 20050929, end: 20071116
  3. CARDURA [Suspect]

REACTIONS (4)
  - ATAXIA [None]
  - DIZZINESS [None]
  - FALL [None]
  - GAIT DISTURBANCE [None]
